FAERS Safety Report 23321737 (Version 4)
Quarter: 2024Q2

REPORT INFORMATION
  Report Type: Spontaneous
  Country: AR (occurrence: AR)
  Receive Date: 20231220
  Receipt Date: 20240606
  Transmission Date: 20240716
  Serious: Yes (Other)
  Sender: FDA-Public Use
  Company Number: AR-002147023-NVSC2022AR212866

PATIENT
  Age: 56 Year
  Sex: Female

DRUGS (5)
  1. FULVESTRANT [Suspect]
     Active Substance: FULVESTRANT
     Indication: Product used for unknown indication
     Dosage: UNK
     Route: 065
  2. KISQALI [Suspect]
     Active Substance: RIBOCICLIB
     Dosage: 600 MG, QD
     Route: 048
     Dates: start: 20220129
  3. KISQALI [Suspect]
     Active Substance: RIBOCICLIB
     Dosage: 600 MG ONCE MONTHLY
     Route: 048
  4. KISQALI [Suspect]
     Active Substance: RIBOCICLIB
     Indication: Breast cancer metastatic
     Dosage: 200 MG, TID
     Route: 048
     Dates: start: 20220129
  5. KISQALI [Suspect]
     Active Substance: RIBOCICLIB
     Dosage: 600 MG, QD
     Route: 048

REACTIONS (25)
  - Peripheral venous disease [Unknown]
  - Peripheral vascular disorder [Unknown]
  - Breast cancer metastatic [Unknown]
  - Malignant neoplasm progression [Unknown]
  - Allergic cough [Unknown]
  - Humerus fracture [Unknown]
  - Limb injury [Unknown]
  - Dysphonia [Unknown]
  - Somnolence [Unknown]
  - Inflammation [Unknown]
  - Scratch [Unknown]
  - Overweight [Unknown]
  - Movement disorder [Unknown]
  - Limb discomfort [Unknown]
  - Memory impairment [Unknown]
  - Peripheral swelling [Unknown]
  - Weight increased [Unknown]
  - Pruritus [Unknown]
  - Pain in extremity [Unknown]
  - Headache [Unknown]
  - Asthenia [Unknown]
  - Fatigue [Unknown]
  - Drug hypersensitivity [Unknown]
  - Inappropriate schedule of product administration [Unknown]
  - Osteoporosis [Unknown]

NARRATIVE: CASE EVENT DATE: 20220801
